FAERS Safety Report 9185988 (Version 4)
Quarter: 2013Q4

REPORT INFORMATION
  Report Type: Spontaneous
  Country: GB (occurrence: GB)
  Receive Date: 20130325
  Receipt Date: 20131025
  Transmission Date: 20140711
  Serious: Yes (Death, Hospitalization, Other)
  Sender: FDA-Public Use
  Company Number: GB-B.I. PHARMACEUTICALS,INC./RIDGEFIELD-2013-UK-00395UK

PATIENT
  Age: 97 Year
  Sex: Female
  Weight: 50 kg

DRUGS (10)
  1. PRADAXA [Suspect]
     Indication: ATRIAL FIBRILLATION
     Dosage: 200 MG
     Route: 048
     Dates: start: 20121001, end: 20130221
  2. ADCAL-D3 [Concomitant]
  3. BISOPROLOL [Concomitant]
  4. FOLIC ACID [Concomitant]
  5. FUROSEMIDE [Concomitant]
  6. NICORANDIL [Concomitant]
  7. PARACETAMOL [Concomitant]
  8. RAMIPRIL [Concomitant]
  9. VITAMIN B COMPLEX STRONG [Concomitant]
  10. CODEINE PHOSPHATE [Concomitant]

REACTIONS (5)
  - Gastrointestinal haemorrhage [Fatal]
  - Haematemesis [Not Recovered/Not Resolved]
  - Hypothermia [Not Recovered/Not Resolved]
  - Melaena [Not Recovered/Not Resolved]
  - Peripheral circulatory failure [Not Recovered/Not Resolved]
